FAERS Safety Report 8015290-6 (Version None)
Quarter: 2011Q4

REPORT INFORMATION
  Report Type: 
  Country: None (occurrence: None)
  Receive Date: 20111230
  Receipt Date: 20111221
  Transmission Date: 20120403
  Serious: Yes (Other)
  Sender: FDA-Public Use
  Company Number: FI-AMGEN-FINSP2011064258

PATIENT
  Age: 73 Year
  Sex: Female
  Weight: 95 kg

DRUGS (7)
  1. ORMOX [Concomitant]
     Dosage: 20 MG, BID
  2. PREDNISOLONE [Concomitant]
     Dosage: 2.5 MG, QD
  3. PROLIA [Suspect]
     Indication: PRODUCT USED FOR UNKNOWN INDICATION
     Dosage: 60 MG, UNK
     Dates: start: 20110101
  4. PERINDOPRIL ERBUMINE [Concomitant]
     Dosage: UNK UNK, QD
  5. FURESIS [Concomitant]
     Dosage: 40 MG, BID
  6. SIMVASTATIN [Concomitant]
     Dosage: 40 MG, QD
  7. OXIKLORIN [Concomitant]
     Dosage: 300 MG, 3 TIMES/WK

REACTIONS (3)
  - RENAL FAILURE [None]
  - ELECTROCARDIOGRAM QT PROLONGED [None]
  - HYPOCALCAEMIA [None]
